FAERS Safety Report 7222079-4 (Version None)
Quarter: 2011Q1

REPORT INFORMATION
  Report Type: 
  Country: None (occurrence: None)
  Receive Date: 20110112
  Receipt Date: 20110105
  Transmission Date: 20110831
  Serious: Yes (Other)
  Sender: FDA-Public Use
  Company Number: BE-JNJFOC-20110100139

PATIENT
  Age: 45 Year
  Sex: Male

DRUGS (5)
  1. INVEGA [Suspect]
     Indication: ILL-DEFINED DISORDER
     Route: 048
  2. INVEGA [Suspect]
     Route: 048
  3. INVEGA [Suspect]
     Route: 048
  4. INVEGA [Suspect]
     Route: 048
  5. DEPAKENE [Concomitant]
     Indication: ILL-DEFINED DISORDER

REACTIONS (1)
  - HYPONATRAEMIA [None]
